FAERS Safety Report 6438070-1 (Version None)
Quarter: 2009Q4

REPORT INFORMATION
  Report Type: 
  Country: None (occurrence: None)
  Receive Date: 20091112
  Receipt Date: 20091102
  Transmission Date: 20100525
  Serious: Yes (Other)
  Sender: FDA-Public Use
  Company Number: TR-ELI_LILLY_AND_COMPANY-TR200911000413

PATIENT
  Sex: Male

DRUGS (4)
  1. HUMALOG MIX 75/25 [Suspect]
     Indication: DIABETES MELLITUS
     Dosage: 20 U, EACH MORNING
     Route: 058
     Dates: start: 20090101
  2. HUMALOG MIX 75/25 [Suspect]
     Dosage: 17 U, EACH EVENING
     Route: 058
     Dates: start: 20090101
  3. NORVASC [Concomitant]
     Dosage: UNK, DAILY (1/D)
     Route: 065
  4. ANALGESICS [Concomitant]
     Indication: PAIN
     Dosage: UNK, 2/D
     Route: 065

REACTIONS (3)
  - BLOOD GLUCOSE DECREASED [None]
  - EYE HAEMORRHAGE [None]
  - VISUAL IMPAIRMENT [None]
